FAERS Safety Report 9748861 (Version 3)
Quarter: 2014Q2

REPORT INFORMATION
  Report Type: Spontaneous
  Country: US (occurrence: US)
  Receive Date: 20131212
  Receipt Date: 20140611
  Transmission Date: 20141212
  Serious: No
  Sender: FDA-Public Use
  Company Number: US-INCYTE CORPORATION-2013IN002066

PATIENT
  Sex: Female
  Weight: 67.12 kg

DRUGS (17)
  1. JAKAFI [Suspect]
     Indication: ESSENTIAL THROMBOCYTHAEMIA
     Dosage: 20 MG, BID
     Route: 048
     Dates: start: 20130613
  2. JAKAFI [Suspect]
     Indication: MYELOFIBROSIS
  3. AMBIEN [Concomitant]
     Dosage: 10 UNK, UNK
     Route: 048
  4. TYLENOL PM EXTRA STRENGTH [Concomitant]
     Route: 048
  5. LANTUS [Concomitant]
     Dosage: 100 UNK, UNK
  6. SIMVASTATIN [Concomitant]
     Dosage: 10 MG, UNK
     Route: 048
  7. METFORMIN [Concomitant]
     Dosage: 1000 MG, UNK
     Route: 048
  8. LISINOPRIL [Concomitant]
     Dosage: 10 MG, UNK
     Route: 048
  9. GABAPENTIN [Concomitant]
     Dosage: 100 MG, UNK
     Route: 048
  10. CLOBETASOL [Concomitant]
     Dosage: 0.05 %, UNK
     Route: 061
  11. B COMPLEX [Concomitant]
  12. NOVOLOG [Concomitant]
  13. TACROLIMUS [Concomitant]
     Dosage: 0.5 MG, UNK
     Route: 048
  14. MECLIZINE [Concomitant]
     Dosage: 12.5 MG, UNK
     Route: 048
  15. ASPIRIN [Concomitant]
     Dosage: 81 MG, UNK
  16. ALBUTEROL HFA [Concomitant]
     Dosage: 90 MCG, UNK
     Route: 050
  17. OMEPRAZOLE [Concomitant]
     Dosage: UNK

REACTIONS (7)
  - Fluid retention [Unknown]
  - Increased appetite [Unknown]
  - Rash [Unknown]
  - Drug dose omission [Unknown]
  - Weight increased [Unknown]
  - Contusion [Unknown]
  - Dizziness [Unknown]
